FAERS Safety Report 7294720-1 (Version None)
Quarter: 2011Q1

REPORT INFORMATION
  Report Type: 
  Country: None (occurrence: None)
  Receive Date: 20110203
  Receipt Date: 20110118
  Transmission Date: 20110831
  Serious: Yes (Other)
  Sender: FDA-Public Use
  Company Number: 007223

PATIENT
  Sex: Female

DRUGS (16)
  1. IRON SLUFATE [Concomitant]
  2. NEURONTIN [Concomitant]
  3. MIRAPEX [Concomitant]
  4. BENADRYL [Concomitant]
  5. FLUOXETINE [Concomitant]
  6. HYDROCODONE [Concomitant]
  7. MUCINEX [Concomitant]
  8. QUETIAPINE [Concomitant]
  9. KLONOPIN [Concomitant]
  10. FOLIC ACID [Concomitant]
  11. CIMZIA [Suspect]
     Indication: RHEUMATOID ARTHRITIS
     Dosage: (SUBCUTANEOUS)
     Route: 058
     Dates: start: 20100125, end: 20100128
  12. AMANTADINE HCL [Concomitant]
  13. PREVACID [Concomitant]
  14. TRIAMTERENE [Concomitant]
  15. PLAQUENIL [Concomitant]
  16. CENTRUM SILVER /01292501/ [Concomitant]

REACTIONS (1)
  - PSORIASIS [None]
